FAERS Safety Report 16614702 (Version 2)
Quarter: 2019Q3

REPORT INFORMATION
  Report Type: Spontaneous
  Country: US (occurrence: US)
  Receive Date: 20190723
  Receipt Date: 20190821
  Transmission Date: 20191004
  Serious: No
  Sender: FDA-Public Use
  Company Number: US-PFIZER INC-2019311042

PATIENT
  Age: 42 Year
  Sex: Male
  Weight: 88.44 kg

DRUGS (1)
  1. VIAGRA [Suspect]
     Active Substance: SILDENAFIL CITRATE
     Indication: ERECTILE DYSFUNCTION
     Dosage: 100 MG, UNK (100MG ABOUT 2-3 TIMES WEEK)

REACTIONS (3)
  - Blood cholesterol increased [Recovered/Resolved]
  - Blood potassium decreased [Recovered/Resolved]
  - Hypertension [Recovered/Resolved]
